FAERS Safety Report 26052178 (Version 1)
Quarter: 2025Q4

REPORT INFORMATION
  Report Type: Spontaneous
  Country: EU (occurrence: EU)
  Receive Date: 20251117
  Receipt Date: 20251117
  Transmission Date: 20260118
  Serious: Yes (Hospitalization)
  Sender: SAMSUNG BIOEPIS
  Company Number: None

PATIENT
  Age: 57 Year
  Sex: Female

DRUGS (2)
  1. IMRALDI [Suspect]
     Active Substance: ADALIMUMAB
     Indication: Rheumatoid arthritis
     Dosage: 40MG/0.4ML; 1 EVERY 15 DAYS;
     Route: 058
     Dates: start: 20250919
  2. OLUMIANT [Concomitant]
     Active Substance: BARICITINIB
     Indication: Rheumatoid arthritis
     Route: 048
     Dates: end: 20250918

REACTIONS (2)
  - Pyelonephritis acute [Recovering/Resolving]
  - Bacteraemia [Recovering/Resolving]

NARRATIVE: CASE EVENT DATE: 20251024
